FAERS Safety Report 5412257-9 (Version None)
Quarter: 2007Q3

REPORT INFORMATION
  Report Type: 
  Country: None (occurrence: None)
  Receive Date: 20070713
  Receipt Date: 20070518
  Transmission Date: 20080115
  Serious: No
  Sender: FDA-Public Use
  Company Number: 2007SP001858

PATIENT
  Age: 56 Year
  Sex: Female
  Weight: 66.2252 kg

DRUGS (2)
  1. LUNESTA [Suspect]
     Indication: INSOMNIA
     Dosage: 3 MG;PRN;ORAL
     Route: 048
     Dates: start: 20070401, end: 20070517
  2. EXCEDRIN [Concomitant]

REACTIONS (1)
  - DYSGEUSIA [None]
